FAERS Safety Report 16469180 (Version 1)
Quarter: 2019Q3

REPORT INFORMATION
  Report Type: Spontaneous
  Country: US (occurrence: US)
  Receive Date: 20190621
  Receipt Date: 20190621
  Transmission Date: 20191004
  Serious: Yes (Disabling)
  Sender: FDA-Public Use
  Company Number: None

PATIENT
  Age: 44 Year
  Sex: Female
  Weight: 58.5 kg

DRUGS (1)
  1. CIPRO [Suspect]
     Active Substance: CIPROFLOXACIN HYDROCHLORIDE
     Indication: DIVERTICULITIS
     Dosage: ?          QUANTITY:1 TABLET(S);?
     Dates: start: 20180621, end: 20180701

REACTIONS (17)
  - Head discomfort [None]
  - Tinnitus [None]
  - Palpitations [None]
  - Migraine [None]
  - Feeling abnormal [None]
  - Gait inability [None]
  - Paraesthesia [None]
  - Vision blurred [None]
  - Mood swings [None]
  - Eye pain [None]
  - Back pain [None]
  - Fatigue [None]
  - Pain in extremity [None]
  - Amnesia [None]
  - Arthropathy [None]
  - Gastrointestinal disorder [None]
  - Rash [None]

NARRATIVE: CASE EVENT DATE: 20180626
